FAERS Safety Report 5340379-X (Version None)
Quarter: 2007Q2

REPORT INFORMATION
  Report Type: 
  Country: None (occurrence: None)
  Receive Date: 20070405
  Receipt Date: 20070111
  Transmission Date: 20071010
  Serious: Yes (Other)
  Sender: FDA-Public Use
  Company Number: US200701002968

PATIENT
  Age: 45 Year
  Sex: Female

DRUGS (2)
  1. CYMBALTA [Suspect]
     Dosage: 60 MG, 2/D
     Dates: start: 20060501, end: 20061001
  2. OTHER ANALGESICS AND ANTIPYRETICS [Concomitant]

REACTIONS (1)
  - CONVULSION [None]
